FAERS Safety Report 6766767-2 (Version None)
Quarter: 2010Q2

REPORT INFORMATION
  Report Type: 
  Country: None (occurrence: None)
  Receive Date: 20100611
  Receipt Date: 20100602
  Transmission Date: 20101027
  Serious: Yes (Death)
  Sender: FDA-Public Use
  Company Number: KZ-NOVOPROD-309587

PATIENT
  Age: 6 Year
  Sex: Male

DRUGS (3)
  1. NOVOSEVEN [Suspect]
     Indication: HAEMOPHILIA A WITH ANTI FACTOR VIII
     Dosage: 2.4 MG, UNK
     Route: 042
     Dates: start: 20100423, end: 20100423
  2. FEIBA                              /01034301/ [Concomitant]
     Indication: HAEMOPHILIA A WITH ANTI FACTOR VIII
     Dosage: UNK
     Route: 042
     Dates: start: 20100420, end: 20100426
  3. FACTOR VIII [Concomitant]
     Indication: HAEMOPHILIA A WITH ANTI FACTOR VIII
     Dosage: UNK
     Route: 042
     Dates: start: 20100420, end: 20100426

REACTIONS (3)
  - DISSEMINATED INTRAVASCULAR COAGULATION [None]
  - HAEMORRHAGE INTRACRANIAL [None]
  - MULTI-ORGAN FAILURE [None]
